FAERS Safety Report 16932761 (Version 1)
Quarter: 2019Q4

REPORT INFORMATION
  Report Type: Spontaneous
  Country: CN (occurrence: CN)
  Receive Date: 20191018
  Receipt Date: 20191018
  Transmission Date: 20200122
  Serious: Yes (Hospitalization)
  Sender: FDA-Public Use
  Company Number: CN-DRREDDYS-GPV/CHN/19/0115189

PATIENT
  Age: 69 Year
  Sex: Male
  Weight: 80 kg

DRUGS (2)
  1. OLANZ [Suspect]
     Active Substance: OLANZAPINE
     Indication: PERSONALITY DISORDER
     Route: 048
     Dates: start: 20190924
  2. OLANZ [Suspect]
     Active Substance: OLANZAPINE
     Route: 048
     Dates: end: 20191012

REACTIONS (2)
  - Lethargy [Recovering/Resolving]
  - Extrapyramidal disorder [Recovering/Resolving]

NARRATIVE: CASE EVENT DATE: 20190929
